FAERS Safety Report 8439746-7 (Version None)
Quarter: 2012Q2

REPORT INFORMATION
  Report Type: 
  Country: None (occurrence: None)
  Receive Date: 20120323
  Receipt Date: 20110531
  Transmission Date: 20120825
  Serious: Yes (Hospitalization)
  Sender: FDA-Public Use
  Company Number: 163-21880-11053911

PATIENT
  Age: 67 Year
  Sex: Female

DRUGS (10)
  1. ZETIA [Concomitant]
  2. ZOCOR [Concomitant]
  3. CARDIZEM [Concomitant]
  4. SENOKOT [Concomitant]
  5. VALIUM [Concomitant]
  6. REVLIMID [Suspect]
     Indication: MULTIPLE MYELOMA
     Dosage: 15 MG, DAILY X 21 DAYS, PO 10 MG, DAILY X 21 DAYS, PO 5 MG, DAILY X 21 DAYS, PO
     Route: 048
     Dates: start: 20100801
  7. REVLIMID [Suspect]
     Indication: MULTIPLE MYELOMA
     Dosage: 15 MG, DAILY X 21 DAYS, PO 10 MG, DAILY X 21 DAYS, PO 5 MG, DAILY X 21 DAYS, PO
     Route: 048
     Dates: start: 20101201
  8. REVLIMID [Suspect]
     Indication: MULTIPLE MYELOMA
     Dosage: 15 MG, DAILY X 21 DAYS, PO 10 MG, DAILY X 21 DAYS, PO 5 MG, DAILY X 21 DAYS, PO
     Route: 048
     Dates: start: 20101101
  9. COUMADIN [Concomitant]
  10. GLUCOTROL [Concomitant]

REACTIONS (2)
  - GASTROINTESTINAL HAEMORRHAGE [None]
  - HAEMOGLOBIN DECREASED [None]
